FAERS Safety Report 12589661 (Version 2)
Quarter: 2016Q3

REPORT INFORMATION
  Report Type: Spontaneous
  Country: US (occurrence: US)
  Receive Date: 20160725
  Receipt Date: 20160805
  Transmission Date: 20161109
  Serious: Yes (Other)
  Sender: FDA-Public Use
  Company Number: ALCN2016US005180

PATIENT
  Age: 71 Year
  Sex: Male

DRUGS (3)
  1. BSS [Suspect]
     Active Substance: CALCIUM CHLORIDE\MAGNESIUM CHLORIDE\POTASSIUM CHLORIDE\SODIUM ACETATE\SODIUM CHLORIDE\SODIUM CITRATE
     Indication: CATARACT OPERATION
     Dosage: UNK
     Route: 047
     Dates: start: 20160204, end: 20160204
  2. OCUFLOX//LOMEFLOXACIN HYDROCHLORIDE [Concomitant]
     Indication: CATARACT OPERATION
     Route: 047
  3. BETADINE [Suspect]
     Active Substance: POVIDONE-IODINE
     Indication: CATARACT OPERATION
     Dosage: UNK
     Route: 047
     Dates: start: 20160204, end: 20160204

REACTIONS (3)
  - Endophthalmitis [Recovered/Resolved]
  - Hypopyon [Recovered/Resolved]
  - Iris bombe [Recovered/Resolved]

NARRATIVE: CASE EVENT DATE: 20160208
